FAERS Safety Report 15884572 (Version 2)
Quarter: 2019Q1

REPORT INFORMATION
  Report Type: Spontaneous
  Country: US (occurrence: US)
  Receive Date: 20190129
  Receipt Date: 20190319
  Transmission Date: 20190417
  Serious: Yes (Hospitalization)
  Sender: FDA-Public Use
  Company Number: US-BAUSCH-BL-2019-002500

PATIENT
  Age: 62 Year
  Sex: Female
  Weight: 61.29 kg

DRUGS (1)
  1. DESMOPRESSIN ACETATE NASAL SOLUTION 0.01% [Suspect]
     Active Substance: DESMOPRESSIN ACETATE
     Indication: DIABETES INSIPIDUS
     Dosage: ABOUT 2 YEARS AGO
     Route: 045

REACTIONS (5)
  - Headache [Recovered/Resolved]
  - Malaise [Recovered/Resolved]
  - Blood sodium decreased [Recovered/Resolved]
  - Overdose [Unknown]
  - Product container issue [Unknown]

NARRATIVE: CASE EVENT DATE: 201812
